FAERS Safety Report 9801148 (Version 2)
Quarter: 2014Q1

REPORT INFORMATION
  Report Type: Spontaneous
  Country: US (occurrence: US)
  Receive Date: 20140107
  Receipt Date: 20140224
  Transmission Date: 20141002
  Serious: Yes (Other)
  Sender: FDA-Public Use
  Company Number: US-PFIZER INC-2014001214

PATIENT
  Age: 59 Year
  Sex: Male
  Weight: 111 kg

DRUGS (5)
  1. NEURONTIN [Suspect]
     Indication: PAIN
     Dosage: 600 MG, 4X/DAY
     Route: 048
     Dates: start: 201308
  2. NEURONTIN [Suspect]
     Indication: BURNING SENSATION
     Dosage: 600 MG, UNK
     Route: 048
     Dates: start: 2013
  3. NEURONTIN [Suspect]
     Indication: BURNING SENSATION
     Dosage: 600 MG, 3X/DAY
     Route: 048
     Dates: start: 2013
  4. MELOXICAM [Concomitant]
     Indication: ARTHRITIS
     Dosage: UNK, 1X/DAY
  5. LISINOPRIL [Concomitant]
     Indication: HYPERTENSION
     Dosage: UNK

REACTIONS (5)
  - Spondylolisthesis [Recovering/Resolving]
  - Lumbar radiculopathy [Recovering/Resolving]
  - Lumbar spinal stenosis [Recovering/Resolving]
  - Tendonitis [Unknown]
  - Drug ineffective for unapproved indication [Unknown]
